FAERS Safety Report 22530500 (Version 5)
Quarter: 2023Q4

REPORT INFORMATION
  Report Type: Report from Study
  Country: TH (occurrence: TH)
  Receive Date: 20230607
  Receipt Date: 20231024
  Transmission Date: 20240110
  Serious: Yes (Other)
  Sender: FDA-Public Use
  Company Number: TH-002147023-NVSC2022TH284519

PATIENT
  Sex: Female
  Weight: 62.8 kg

DRUGS (7)
  1. KISQALI [Suspect]
     Active Substance: RIBOCICLIB
     Indication: Breast cancer metastatic
     Dosage: 3 DOSAGE FORM, QD (63 TABLETS) (AFTER BREAKFAST), AFTER MEAL ? TAKING 3 WEEKS, SKIPPING 1 WEEK)
     Route: 048
     Dates: start: 20221122
  2. KISQALI [Suspect]
     Active Substance: RIBOCICLIB
     Dosage: 200 MG
     Route: 048
  3. LETROZOLE [Suspect]
     Active Substance: LETROZOLE
     Indication: Product used for unknown indication
     Dosage: 2.5 MG (30 TAB) (1 TABLET ONCE DAILY AFTER BREAKFAST)
     Route: 065
     Dates: start: 20221108
  4. CALCIUM CARBONATE [Concomitant]
     Active Substance: CALCIUM CARBONATE
     Indication: Product used for unknown indication
     Dosage: 1 G, QD (30 TAB) (1 TABLET ONCE DAILY AFTER BREAKFAST)
     Route: 048
  5. VITAMIN D3 [Concomitant]
     Active Substance: CHOLECALCIFEROL
     Indication: Product used for unknown indication
     Dosage: 0.25 UG (30 CAP) (1 TABLET ONCE DAILY AFTER BREAKFAST)
     Route: 048
  6. SODIUM CHLORIDE [Concomitant]
     Active Substance: SODIUM CHLORIDE
     Indication: Product used for unknown indication
     Dosage: 100 ML (1 BOTTLE)
     Route: 042
  7. ZOLEDRONIC ACID [Concomitant]
     Active Substance: ZOLEDRONIC ACID
     Indication: Product used for unknown indication
     Dosage: 4 MG (1 VIAL ONCE DAILY)
     Route: 042

REACTIONS (6)
  - Bone cancer [Unknown]
  - Second primary malignancy [Unknown]
  - Body mass index increased [Unknown]
  - Waist circumference increased [Unknown]
  - Hypertension [Unknown]
  - Drug resistance [Unknown]
